FAERS Safety Report 25189685 (Version 4)
Quarter: 2025Q2

REPORT INFORMATION
  Report Type: Spontaneous
  Country: BR (occurrence: BR)
  Receive Date: 20250411
  Receipt Date: 20250530
  Transmission Date: 20250717
  Serious: Yes (Hospitalization, Other)
  Sender: AZURITY PHARMACEUTICALS
  Company Number: BR-AZURITY PHARMACEUTICALS, INC.-AZR202503-001060

PATIENT
  Age: 33 Year
  Sex: Female

DRUGS (7)
  1. TRIPTORELIN [Suspect]
     Active Substance: TRIPTORELIN
     Indication: Breast cancer
     Route: 030
     Dates: start: 20250320
  2. TRIPTORELIN [Suspect]
     Active Substance: TRIPTORELIN
     Indication: Metastases to lymph nodes
  3. LOSARTAN [Concomitant]
     Active Substance: LOSARTAN
     Indication: Hypertension
     Route: 065
  4. ANASTROZOLE [Concomitant]
     Active Substance: ANASTROZOLE
     Indication: Breast cancer
     Route: 065
  5. ANASTROZOLE [Concomitant]
     Active Substance: ANASTROZOLE
     Indication: Metastases to lymph nodes
  6. Abemaciclibe [Concomitant]
     Indication: Breast cancer
     Dosage: 50 MILLIGRAM, Q12H
     Route: 065
     Dates: start: 20250321
  7. Abemaciclibe [Concomitant]
     Indication: Metastases to lymph nodes

REACTIONS (10)
  - Metastases to central nervous system [Not Recovered/Not Resolved]
  - Oxygen saturation decreased [Recovered/Resolved]
  - Dysphagia [Recovered/Resolved]
  - Chills [Recovered/Resolved]
  - Vomiting [Recovered/Resolved]
  - Diarrhoea [Recovered/Resolved]
  - Dyspnoea [Recovered/Resolved]
  - Headache [Recovered/Resolved]
  - Cough [Recovered/Resolved]
  - Product use in unapproved indication [Unknown]

NARRATIVE: CASE EVENT DATE: 20250320
